FAERS Safety Report 5226856-0 (Version None)
Quarter: 2007Q1

REPORT INFORMATION
  Report Type: 
  Country: None (occurrence: None)
  Receive Date: 20070130
  Receipt Date: 20070118
  Transmission Date: 20070707
  Serious: Yes (Death, Life-Threatening)
  Sender: FDA-Public Use
  Company Number: 2007-00060

PATIENT
  Age: 80 Year
  Sex: Male

DRUGS (8)
  1. VELCADE [Suspect]
     Indication: MULTIPLE MYELOMA
     Dosage: 1.30 MG/M2,
     Dates: start: 20061229, end: 20070108
  2. LAFUTIDINE (LAFUTIDINE) [Concomitant]
  3. SELBEX (TEPRENONE) [Concomitant]
  4. DIFLUCAN [Concomitant]
  5. ALENDRONATE SODIUM [Concomitant]
  6. ROHYPNOL (FLUNITRAZEPAM) [Concomitant]
  7. BAKTAR (SULFAMETHOXAZOLE, TRIMETHOPRIM) [Concomitant]
  8. HEPARIN [Concomitant]

REACTIONS (9)
  - BLOOD POTASSIUM DECREASED [None]
  - CONDITION AGGRAVATED [None]
  - ELECTROCARDIOGRAM QT PROLONGED [None]
  - HYPOTENSION [None]
  - NO THERAPEUTIC RESPONSE [None]
  - PULMONARY EMBOLISM [None]
  - RESPIRATORY ARREST [None]
  - TORSADE DE POINTES [None]
  - VENTRICULAR TACHYCARDIA [None]
